APPROVED DRUG PRODUCT: ISONIAZID
Active Ingredient: ISONIAZID
Strength: 300MG
Dosage Form/Route: TABLET;ORAL
Application: A202610 | Product #002 | TE Code: AA
Applicant: THEPHARMANETWORK LLC
Approved: Oct 29, 2014 | RLD: No | RS: No | Type: RX